FAERS Safety Report 10220505 (Version 1)
Quarter: 2014Q2

REPORT INFORMATION
  Report Type: Other
  Country: US (occurrence: US)
  Receive Date: 20140606
  Receipt Date: 20140606
  Transmission Date: 20141212
  Serious: Yes (Hospitalization)
  Sender: FDA-Public Use
  Company Number: US-BRISTOL-MYERS SQUIBB COMPANY-20891057

PATIENT
  Age: 27 Year
  Sex: Female

DRUGS (5)
  1. WARFARIN SODIUM [Suspect]
     Dosage: 1DF = 60 TABLET
     Route: 048
  2. OXYCODONE HCL + ACETAMINOPHEN [Suspect]
  3. IBUPROFEN [Suspect]
  4. NAPROXEN [Suspect]
  5. NORTRIPTYLINE [Suspect]

REACTIONS (9)
  - Suicide attempt [Unknown]
  - Overdose [Unknown]
  - International normalised ratio increased [Unknown]
  - Miosis [Unknown]
  - Sedation [Unknown]
  - Tachycardia [Unknown]
  - Gastrointestinal sounds abnormal [Unknown]
  - Blood pressure increased [None]
  - Heart rate increased [None]
